FAERS Safety Report 9648168 (Version 2)
Quarter: 2013Q4

REPORT INFORMATION
  Report Type: Report from Study
  Country: US (occurrence: US)
  Receive Date: 20131028
  Receipt Date: 20131028
  Transmission Date: 20140711
  Serious: Yes (Other)
  Sender: FDA-Public Use
  Company Number: PHEH2013US018844

PATIENT
  Age: 82 Year
  Sex: Female

DRUGS (6)
  1. AFINITOR [Suspect]
     Indication: LUNG NEOPLASM MALIGNANT
     Dosage: 10 MG, QD
     Route: 048
     Dates: start: 201304, end: 20130718
  2. AFINITOR [Suspect]
     Indication: OFF LABEL USE
  3. LISINOPRIL [Concomitant]
     Dosage: 10 MG, QD
  4. TRIAMTERENE AND HYDROCHLOROTHIAZID [Concomitant]
  5. OMEPRAZOLE [Concomitant]
     Dosage: 10 MG, PRN
  6. DOCUSATE [Concomitant]
     Dosage: 100 MG, Q12H

REACTIONS (2)
  - Lung disorder [Unknown]
  - Pneumonitis [Recovered/Resolved]
